FAERS Safety Report 5115084-5 (Version None)
Quarter: 2006Q3

REPORT INFORMATION
  Report Type: 
  Country: None (occurrence: None)
  Receive Date: 20060925
  Receipt Date: 20060925
  Transmission Date: 20061208
  Serious: Yes (Life-Threatening, Hospitalization)
  Sender: FDA-Public Use
  Company Number: None

PATIENT
  Age: 64 Year
  Sex: Male
  Weight: 77.5 kg

DRUGS (12)
  1. GADOLINIUM [Suspect]
     Indication: NUCLEAR MAGNETIC RESONANCE IMAGING
     Dosage: IV X 1
     Route: 042
     Dates: start: 20060921
  2. HYDROCODONE BITARTRATE + ACETAMINOPHEN [Concomitant]
  3. MORPHINE SULFATE [Concomitant]
  4. AMITRIPTYLINE HCL [Concomitant]
  5. PANTOPRAZOLE NA [Concomitant]
  6. METOPROLOL TARTRATE [Concomitant]
  7. SIMVASTATIN [Concomitant]
  8. CITALOPRAM HYDROBROMIDE [Concomitant]
  9. SENNOSIDES [Concomitant]
  10. DOCUSATE NA [Concomitant]
  11. LORATADINE [Concomitant]
  12. TIZANIDINE HCL [Concomitant]

REACTIONS (3)
  - DIZZINESS [None]
  - DYSPNOEA [None]
  - PRURITUS [None]
